FAERS Safety Report 24955635 (Version 1)
Quarter: 2025Q1

REPORT INFORMATION
  Report Type: Spontaneous
  Country: FR (occurrence: FR)
  Receive Date: 20250211
  Receipt Date: 20250211
  Transmission Date: 20250409
  Serious: Yes (Other)
  Sender: MYLAN
  Company Number: FR-MYLANLABS-2025M1010695

PATIENT
  Age: 14 Year
  Sex: Male

DRUGS (10)
  1. DOXYCYCLINE [Suspect]
     Active Substance: DOXYCYCLINE
     Indication: Autoimmune disorder
     Route: 065
  2. DOXYCYCLINE [Suspect]
     Active Substance: DOXYCYCLINE
     Indication: Neutrophilic dermatosis
  3. PREDNISOLONE [Suspect]
     Active Substance: PREDNISOLONE
     Indication: Autoimmune disorder
     Route: 048
  4. PREDNISOLONE [Suspect]
     Active Substance: PREDNISOLONE
     Indication: Neutrophilic dermatosis
  5. COLCHICINE [Suspect]
     Active Substance: COLCHICINE
     Indication: Autoimmune disorder
     Route: 065
  6. COLCHICINE [Suspect]
     Active Substance: COLCHICINE
     Indication: Neutrophilic dermatosis
  7. DAPSONE [Suspect]
     Active Substance: DAPSONE
     Indication: Autoimmune disorder
     Route: 065
  8. DAPSONE [Suspect]
     Active Substance: DAPSONE
     Indication: Neutrophilic dermatosis
  9. ZINC [Suspect]
     Active Substance: ZINC
     Indication: Autoimmune disorder
     Route: 048
  10. ZINC [Suspect]
     Active Substance: ZINC
     Indication: Neutrophilic dermatosis

REACTIONS (2)
  - Drug ineffective [Unknown]
  - Off label use [Unknown]
